FAERS Safety Report 15250212 (Version 1)
Quarter: 2018Q3

REPORT INFORMATION
  Report Type: Spontaneous
  Country: US (occurrence: US)
  Receive Date: 20180716
  Receipt Date: 20180716
  Transmission Date: 20181010
  Serious: No
  Sender: FDA-Public Use
  Company Number: None

PATIENT
  Age: 77 Year
  Sex: Male

DRUGS (16)
  1. PROBENECID. [Concomitant]
     Active Substance: PROBENECID
  2. XARELTO [Concomitant]
     Active Substance: RIVAROXABAN
  3. COLORYS [Concomitant]
  4. DOFETILIDE. [Concomitant]
     Active Substance: DOFETILIDE
  5. LISINOPRIL. [Concomitant]
     Active Substance: LISINOPRIL
  6. METAMUCIL [Concomitant]
     Active Substance: PLANTAGO SEED
  7. ADCIRCA [Suspect]
     Active Substance: TADALAFIL
     Indication: PULMONARY ARTERIAL HYPERTENSION
     Route: 048
     Dates: start: 20150303
  8. TAMSULOSIN [Concomitant]
     Active Substance: TAMSULOSIN
  9. CARVEDILOL. [Concomitant]
     Active Substance: CARVEDILOL
  10. LEVEMIR [Concomitant]
     Active Substance: INSULIN DETEMIR
  11. TIKOSYN [Concomitant]
     Active Substance: DOFETILIDE
  12. METOLAZONE. [Concomitant]
     Active Substance: METOLAZONE
  13. POTASSIUM CHLORIDE. [Concomitant]
     Active Substance: POTASSIUM CHLORIDE
  14. NITROGLYCERIN. [Concomitant]
     Active Substance: NITROGLYCERIN
  15. HUMALOG [Concomitant]
     Active Substance: INSULIN LISPRO
  16. NOVOLOG [Concomitant]
     Active Substance: INSULIN ASPART

REACTIONS (1)
  - Fluid retention [None]

NARRATIVE: CASE EVENT DATE: 20180625
